FAERS Safety Report 8619422-8 (Version None)
Quarter: 2012Q3

REPORT INFORMATION
  Report Type: 
  Country: None (occurrence: None)
  Receive Date: 20120824
  Receipt Date: 20120809
  Transmission Date: 20120928
  Serious: Yes (Life-Threatening, Hospitalization)
  Sender: FDA-Public Use
  Company Number: JP-AMGEN-US141066

PATIENT
  Age: 73 Year
  Sex: Female
  Weight: 57.959 kg

DRUGS (19)
  1. DOXAZOSIN MESYLATE [Concomitant]
     Dosage: 4 MG, QD
     Route: 048
  2. CALSLOT [Concomitant]
     Dosage: 20 MG, QD
     Route: 048
  3. RISEDRONATE SODIUM [Concomitant]
     Dosage: 25 MG, QD
     Route: 048
  4. LORCAM [Concomitant]
     Dosage: 12 MG, QD
     Route: 048
  5. ISONIAZID [Concomitant]
     Dosage: 300 MG, QD
     Route: 048
     Dates: start: 20050603, end: 20050624
  6. ENBREL [Suspect]
     Indication: RHEUMATOID ARTHRITIS
     Dosage: 25 MG, 2 TIMES/WK
     Route: 058
     Dates: start: 20050603, end: 20050621
  7. PREDNISOLONE [Concomitant]
     Dosage: 10 MG, QD
     Route: 048
     Dates: start: 20040301
  8. LASIX [Concomitant]
     Dosage: UNK UNK, UNK
     Route: 048
  9. GASTROM [Concomitant]
     Dosage: UNK UNK, UNK
     Route: 048
  10. ASPARTATE POTASSIUM [Concomitant]
     Dosage: UNK UNK, UNK
     Route: 048
  11. PREDNISOLONE [Concomitant]
     Dosage: 10 MG, QD
     Route: 048
  12. PREDNISOLONE [Concomitant]
     Dosage: UNK UNK, UNK
     Route: 048
     Dates: start: 19970101
  13. RABEPRAZOLE SODIUM [Concomitant]
     Dosage: 20 MG, QD
     Route: 048
  14. ENBREL [Suspect]
     Dosage: 25 MG, 2 TIMES/WK
     Route: 058
     Dates: start: 20050708, end: 20060201
  15. MISOPROSTOL [Concomitant]
     Dosage: UNK UNK, UNK
     Route: 048
  16. FERROMIA                           /00023516/ [Concomitant]
     Dosage: UNK UNK, UNK
     Route: 048
  17. ALFACALCIDOL [Concomitant]
     Dosage: .5 MUG, QD
     Route: 048
  18. PROPIVERINE HYDROCHLORIDE [Concomitant]
     Dosage: UNK UNK, UNK
     Route: 048
  19. BIOFERMIN                          /00275501/ [Concomitant]
     Dosage: UNK UNK, UNK
     Route: 048

REACTIONS (3)
  - PETECHIAE [None]
  - PURPURA [None]
  - LEUKOENCEPHALOPATHY [None]
